FAERS Safety Report 23410448 (Version 1)
Quarter: 2024Q1

REPORT INFORMATION
  Report Type: Spontaneous
  Country: US (occurrence: US)
  Receive Date: 20240117
  Receipt Date: 20240117
  Transmission Date: 20240410
  Serious: No
  Sender: FDA-Public Use
  Company Number: US-PFIZER INC-202400013580

PATIENT
  Age: 12 Year
  Sex: Female

DRUGS (2)
  1. LITFULO [Suspect]
     Active Substance: RITLECITINIB TOSYLATE
     Indication: Alopecia areata
     Dosage: 50 MG QD (EVERY DAY)
  2. CLOBETASOL [Concomitant]
     Active Substance: CLOBETASOL
     Dosage: 2-3X A WEEK

REACTIONS (1)
  - Hair colour changes [Unknown]
